FAERS Safety Report 7208114-8 (Version None)
Quarter: 2010Q4

REPORT INFORMATION
  Report Type: 
  Country: None (occurrence: None)
  Receive Date: 20101203
  Receipt Date: 20101203
  Transmission Date: 20110411
  Serious: Yes (Life-Threatening, Other)
  Sender: FDA-Public Use
  Company Number: None

PATIENT
  Sex: Male
  Weight: 91.173 kg

DRUGS (1)
  1. DEPAKOTE ER [Suspect]
     Indication: MIGRAINE
     Dosage: 250 MG TWICE DAILY INJ
     Dates: start: 20010601, end: 20050115

REACTIONS (13)
  - ATAXIA [None]
  - BALANCE DISORDER [None]
  - CONFUSIONAL STATE [None]
  - DECREASED ACTIVITY [None]
  - DEMYELINATION [None]
  - DISORIENTATION [None]
  - DIZZINESS [None]
  - HYPOTHERMIA [None]
  - MOTOR DYSFUNCTION [None]
  - OCULOGYRIC CRISIS [None]
  - ORTHOSTATIC HYPOTENSION [None]
  - PRESYNCOPE [None]
  - VESTIBULAR DISORDER [None]
